FAERS Safety Report 9565960 (Version 2)
Quarter: 2014Q1

REPORT INFORMATION
  Report Type: Spontaneous
  Country: BR (occurrence: BR)
  Receive Date: 20130930
  Receipt Date: 20140127
  Transmission Date: 20141002
  Serious: Yes (Hospitalization, Other)
  Sender: FDA-Public Use
  Company Number: PHHY2013BR108574

PATIENT
  Age: 11 Year
  Sex: Female

DRUGS (1)
  1. RITALINA [Suspect]
     Indication: PSYCHOMOTOR HYPERACTIVITY
     Dosage: 02 DF, BID (2 TABLETS IN THE MORNING AND 2 TABLETS AT AFTERNOON)
     Route: 048

REACTIONS (5)
  - Lip discolouration [Recovered/Resolved]
  - Laryngitis [Recovered/Resolved]
  - Dyspnoea [Recovered/Resolved]
  - Insomnia [Recovered/Resolved]
  - Drug ineffective [Unknown]
